FAERS Safety Report 9099102 (Version 2)
Quarter: 2013Q1

REPORT INFORMATION
  Report Type: Spontaneous
  Country: GR (occurrence: GR)
  Receive Date: 20130214
  Receipt Date: 20130301
  Transmission Date: 20140127
  Serious: Yes (Other)
  Sender: FDA-Public Use
  Company Number: GR-ELI_LILLY_AND_COMPANY-GR201302001288

PATIENT
  Age: 90 Year
  Sex: Male

DRUGS (1)
  1. CYMBALTA [Suspect]
     Indication: DIABETIC NEUROPATHY
     Dosage: 30 MG, QD
     Route: 048
     Dates: start: 20130126, end: 20130129

REACTIONS (4)
  - Somnolence [Recovered/Resolved]
  - Feeling drunk [Recovered/Resolved]
  - Dysarthria [Recovered/Resolved]
  - Activities of daily living impaired [Unknown]
